FAERS Safety Report 10408458 (Version 1)
Quarter: 2014Q3

REPORT INFORMATION
  Report Type: Spontaneous
  Country: US (occurrence: None)
  Receive Date: 20140822
  Receipt Date: 20140822
  Transmission Date: 20150326
  Serious: No
  Sender: FDA-Public Use
  Company Number: None

PATIENT
  Age: 36 Year
  Sex: Male
  Weight: 90.72 kg

DRUGS (1)
  1. PROPECIA [Suspect]
     Active Substance: FINASTERIDE
     Indication: ALOPECIA
     Dosage: 1  ONCE DAILY TAKEN BY MOUTH
     Route: 048
     Dates: start: 20090114, end: 20120920

REACTIONS (7)
  - Muscle atrophy [None]
  - Erectile dysfunction [None]
  - Libido decreased [None]
  - Blood testosterone decreased [None]
  - Disturbance in attention [None]
  - Blood oestrogen abnormal [None]
  - Feeling abnormal [None]

NARRATIVE: CASE EVENT DATE: 20131106
